FAERS Safety Report 4866194-9 (Version None)
Quarter: 2005Q4

REPORT INFORMATION
  Report Type: 
  Country: None (occurrence: None)
  Receive Date: 20051221
  Receipt Date: 20051207
  Transmission Date: 20060501
  Serious: Yes (Death)
  Sender: FDA-Public Use
  Company Number: US-2005-023885

PATIENT
  Age: 56 Year
  Sex: Male
  Weight: 105 kg

DRUGS (15)
  1. BETASERON [Suspect]
     Indication: SECONDARY PROGRESSIVE MULTIPLE SCLEROSIS
     Dosage: 8 MIU, EVERY 2D, SUBCUTANEOUS
     Route: 058
     Dates: start: 19940126, end: 20050613
  2. METFORMIN HCL [Concomitant]
  3. PIOGLITAZONE HCL [Concomitant]
  4. NIACIN [Concomitant]
  5. SIMVASTATIN [Concomitant]
  6. FLUOXETINE [Concomitant]
  7. BACLOFEN [Concomitant]
  8. RANITIDINE HYDROCHLORIDE [Concomitant]
  9. AMANTADINE HCL [Concomitant]
  10. LISINOPRIL [Concomitant]
  11. LORATADINE [Concomitant]
  12. OXYBUTYNIN CHLORIDE [Concomitant]
  13. TOPIRAMATE [Concomitant]
  14. DIAZEPAM [Concomitant]
  15. ASPIRIN [Concomitant]

REACTIONS (4)
  - ACUTE MYOCARDIAL INFARCTION [None]
  - DISEASE PROGRESSION [None]
  - MULTIPLE SCLEROSIS [None]
  - SYNCOPE [None]
